FAERS Safety Report 4601709-7 (Version None)
Quarter: 2005Q1

REPORT INFORMATION
  Report Type: 
  Country: None (occurrence: None)
  Receive Date: 20050308
  Receipt Date: 20050304
  Transmission Date: 20050727
  Serious: Yes (Other)
  Sender: FDA-Public Use
  Company Number: PHBS2005CH03210

PATIENT
  Age: 65 Year
  Sex: Male

DRUGS (6)
  1. SORTIS [Suspect]
     Indication: HYPERCHOLESTEROLAEMIA
     Dosage: 10 MG, QD
     Dates: start: 20040101, end: 20050207
  2. TOREM [Suspect]
     Indication: CARDIAC FAILURE CONGESTIVE
     Dosage: 10 MG, QD
  3. CONCOR [Suspect]
     Indication: HYPERTENSION
     Dosage: 10 MG, UNK
  4. NEXIUM [Concomitant]
     Dosage: 20 MG, QD
     Dates: start: 20040201
  5. INSULATARD HM [Concomitant]
     Indication: DIABETES MELLITUS
     Dosage: 20 IU, UNK
     Route: 058
  6. CO-DIOVAN [Suspect]
     Indication: ESSENTIAL HYPERTENSION
     Dosage: 1 DF, QD
     Route: 048

REACTIONS (5)
  - DIZZINESS [None]
  - FALL [None]
  - MUSCULAR WEAKNESS [None]
  - SPINAL FRACTURE [None]
  - WOUND [None]
